FAERS Safety Report 6615176-5 (Version None)
Quarter: 2010Q1

REPORT INFORMATION
  Report Type: 
  Country: None (occurrence: None)
  Receive Date: 20100305
  Receipt Date: 20100220
  Transmission Date: 20100710
  Serious: Yes (Hospitalization, Other)
  Sender: FDA-Public Use
  Company Number: PHHY2010BR10269

PATIENT
  Sex: Male

DRUGS (3)
  1. DIOVAN [Suspect]
  2. CONCOR [Concomitant]
  3. PROPAFENONE HCL [Concomitant]

REACTIONS (4)
  - BLOOD PRESSURE FLUCTUATION [None]
  - BLOOD PRESSURE INCREASED [None]
  - CARDIAC OPERATION [None]
  - VASCULAR GRAFT [None]
